FAERS Safety Report 9216594 (Version 4)
Quarter: 2013Q2

REPORT INFORMATION
  Report Type: Spontaneous
  Country: US (occurrence: US)
  Receive Date: 20130408
  Receipt Date: 20130520
  Transmission Date: 20140414
  Serious: No
  Sender: FDA-Public Use
  Company Number: US-PFIZER INC-2013107403

PATIENT
  Age: 53 Year
  Sex: Male
  Weight: 72.11 kg

DRUGS (6)
  1. LYRICA [Suspect]
     Indication: NEURALGIA
     Dosage: 75 MG, 2X/DAY
     Route: 048
     Dates: start: 2012, end: 20130401
  2. LYRICA [Suspect]
     Dosage: 75 MG, 2X/DAY
     Route: 048
     Dates: end: 201303
  3. NORCO [Suspect]
     Indication: NEURALGIA
     Dosage: UNK
  4. BACLOFEN [Concomitant]
     Dosage: 10 MG, UNK
  5. NORCO [Concomitant]
     Indication: PAIN
     Dosage: 325/10 MG, UNK
  6. MORPHIN [Concomitant]
     Indication: PAIN
     Dosage: 30 MG, 2X/DAY

REACTIONS (4)
  - Drug ineffective [Unknown]
  - Pain [Not Recovered/Not Resolved]
  - Sensitivity of teeth [Unknown]
  - Toothache [Unknown]
